FAERS Safety Report 9711952 (Version 1)
Quarter: 2013Q4

REPORT INFORMATION
  Report Type: Spontaneous
  Country: US (occurrence: None)
  Receive Date: 20131125
  Receipt Date: 20131125
  Transmission Date: 20140711
  Serious: Yes (Disabling)
  Sender: FDA-Public Use
  Company Number: None

PATIENT
  Age: 34 Year
  Sex: Female
  Weight: 102.06 kg

DRUGS (2)
  1. METHIMAZOLE [Suspect]
     Indication: BASEDOW^S DISEASE
     Dosage: 10 MG 1 PILL, TWICE DAILY, TAKEN BY MOUTH
     Dates: start: 20130912, end: 20131106
  2. METHIMAZOLE [Suspect]
     Indication: HYPERTHYROIDISM
     Dosage: 10 MG 1 PILL, TWICE DAILY, TAKEN BY MOUTH
     Dates: start: 20130912, end: 20131106

REACTIONS (27)
  - Insomnia [None]
  - Headache [None]
  - Pruritus [None]
  - Drug ineffective [None]
  - Asthenia [None]
  - Pain [None]
  - Local swelling [None]
  - Local swelling [None]
  - Arthritis [None]
  - Rash generalised [None]
  - Skin burning sensation [None]
  - Skin exfoliation [None]
  - Malaise [None]
  - Anaemia [None]
  - Rheumatoid factor increased [None]
  - Antinuclear antibody increased [None]
  - Systemic lupus erythematosus [None]
  - Scar [None]
  - Deformity [None]
  - Inflammation [None]
  - Gait disturbance [None]
  - Arthralgia [None]
  - Quality of life decreased [None]
  - Impaired work ability [None]
  - Depression [None]
  - Impaired driving ability [None]
  - Activities of daily living impaired [None]
